FAERS Safety Report 12613932 (Version 2)
Quarter: 2016Q3

REPORT INFORMATION
  Report Type: Spontaneous
  Country: US (occurrence: US)
  Receive Date: 20160802
  Receipt Date: 20160822
  Transmission Date: 20161109
  Serious: No
  Sender: FDA-Public Use
  Company Number: US-PFIZER INC-2016358631

PATIENT
  Age: 67 Year
  Sex: Female

DRUGS (1)
  1. SUTENT [Suspect]
     Active Substance: SUNITINIB MALATE
     Indication: PANCREATIC CARCINOMA
     Dosage: 37.5 MG, 1X/DAY (TAKE 1 CAPSULE BY MOUTH EVERY DAY)
     Route: 048
     Dates: start: 201607

REACTIONS (2)
  - Abdominal discomfort [Unknown]
  - Fatigue [Unknown]
